FAERS Safety Report 7406004-9 (Version None)
Quarter: 2011Q2

REPORT INFORMATION
  Report Type: 
  Country: None (occurrence: None)
  Receive Date: 20110411
  Receipt Date: 20110404
  Transmission Date: 20111010
  Serious: Yes (Hospitalization)
  Sender: FDA-Public Use
  Company Number: A0886594A

PATIENT
  Age: 55 Year
  Sex: Male
  Weight: 200 kg

DRUGS (1)
  1. ROSIGLITAZONE MALEATE [Suspect]
     Route: 048
     Dates: start: 20000216, end: 20060316

REACTIONS (7)
  - WEIGHT INCREASED [None]
  - CARDIAC OPERATION [None]
  - MYOCARDIAL ISCHAEMIA [None]
  - MYOCARDIAL INFARCTION [None]
  - CORONARY ARTERY DISEASE [None]
  - PULMONARY EMBOLISM [None]
  - CARDIAC FAILURE [None]
